FAERS Safety Report 4523827-4 (Version None)
Quarter: 2004Q4

REPORT INFORMATION
  Report Type: 
  Country: None (occurrence: None)
  Receive Date: 20041101
  Receipt Date: 20040526
  Transmission Date: 20050328
  Serious: Yes (Hospitalization, Other)
  Sender: FDA-Public Use
  Company Number: US076748

PATIENT
  Age: 40 Year
  Sex: Female
  Weight: 143 kg

DRUGS (2)
  1. EPOGEN [Suspect]
     Indication: DIALYSIS
     Dosage: 250500 IU, 3 IN 1 WEEKS
     Dates: start: 20031119
  2. VENOFER [Concomitant]

REACTIONS (5)
  - GRAFT INFECTION [None]
  - IRON DEFICIENCY [None]
  - SEPSIS [None]
  - STAPHYLOCOCCAL INFECTION [None]
  - THERAPEUTIC RESPONSE DECREASED [None]
